FAERS Safety Report 7793777-9 (Version None)
Quarter: 2011Q4

REPORT INFORMATION
  Report Type: 
  Country: None (occurrence: None)
  Receive Date: 20111003
  Receipt Date: 20110921
  Transmission Date: 20120403
  Serious: Yes (Other)
  Sender: FDA-Public Use
  Company Number: PHHY2011DE84141

PATIENT
  Age: 46 Year
  Sex: Male

DRUGS (5)
  1. IBUPROFEN [Concomitant]
     Dosage: UNK UKN, UNK
  2. EXJADE [Concomitant]
     Dosage: UNK UKN, UNK
  3. ACETYLSALICYLIC ACID SRT [Concomitant]
     Dosage: UNK UKN, UNK
  4. ALLOPURINOL [Concomitant]
     Dosage: UNK UKN, UNK
  5. GLEEVEC [Suspect]
     Indication: LEUKAEMIA
     Dosage: 400MG/DAY
     Route: 048

REACTIONS (3)
  - OSTEOPOROSIS [None]
  - CHONDROPATHY [None]
  - OSTEONECROSIS [None]
